FAERS Safety Report 8079993-X (Version None)
Quarter: 2012Q1

REPORT INFORMATION
  Report Type: 
  Country: None (occurrence: None)
  Receive Date: 20120128
  Receipt Date: 20110811
  Transmission Date: 20120608
  Serious: No
  Sender: FDA-Public Use
  Company Number: US-ABBOTT-11P-163-0845774-00

PATIENT
  Age: 54 Year
  Sex: Female

DRUGS (7)
  1. NARCO [Concomitant]
     Indication: ARTHRALGIA
     Dosage: 10/325 MG AS NEEDED
     Dates: start: 20110810
  2. LEVOTHYROXINE SODIUM [Concomitant]
     Indication: HYPOTHYROIDISM
     Dosage: 1.75MG + 1.50MG ALTERNATING DAYS
  3. HUMIRA [Suspect]
     Indication: RHEUMATOID ARTHRITIS
     Dates: start: 20110728
  4. PREDNISONE TAB [Concomitant]
     Indication: RHEUMATOID ARTHRITIS
  5. LEFLUNOMIDE [Concomitant]
     Indication: RHEUMATOID ARTHRITIS
  6. HYDROCHLOROTHIAZIDE [Concomitant]
     Indication: FLUID RETENTION
  7. PROVERA [Concomitant]
     Indication: ENDOMETRIOSIS

REACTIONS (4)
  - PAIN IN EXTREMITY [None]
  - NAIL DISCOLOURATION [None]
  - FEELING HOT [None]
  - INJECTION SITE HAEMORRHAGE [None]
